FAERS Safety Report 7008547-9 (Version None)
Quarter: 2010Q3

REPORT INFORMATION
  Report Type: 
  Country: None (occurrence: None)
  Receive Date: 20100922
  Receipt Date: 20100916
  Transmission Date: 20110219
  Serious: No
  Sender: FDA-Public Use
  Company Number: US-PFIZER INC-2010118690

PATIENT
  Sex: Female
  Weight: 61.7 kg

DRUGS (10)
  1. LOMOTIL [Suspect]
     Indication: DIARRHOEA
     Dosage: UNK
     Dates: start: 20100801
  2. PEPTO-BISMOL [Concomitant]
     Indication: DIARRHOEA
     Dosage: UNK
     Dates: start: 20100801
  3. LORTAB [Concomitant]
     Indication: PAIN
     Dosage: UNK
  4. COREG [Concomitant]
     Indication: CARDIAC OPERATION
     Dosage: 6.5 MG, 2X/DAY
  5. WARFARIN [Concomitant]
     Indication: ANTICOAGULANT THERAPY
  6. SPIRIVA [Concomitant]
     Indication: CHRONIC OBSTRUCTIVE PULMONARY DISEASE
  7. SYMBICORT [Concomitant]
     Indication: ASTHMA
  8. PROZAC [Concomitant]
     Indication: DEPRESSION
     Dosage: 60 MG/DAY
  9. KLONOPIN [Concomitant]
     Indication: DEPRESSION
     Dosage: 1 MG, 2X/DAY
  10. SEROQUEL [Concomitant]
     Indication: CONVULSION
     Dosage: 50 MG/DAY

REACTIONS (1)
  - DRUG INEFFECTIVE [None]
